FAERS Safety Report 10167251 (Version 1)
Quarter: 2014Q2

REPORT INFORMATION
  Report Type: Spontaneous
  Country: US (occurrence: US)
  Receive Date: 20140512
  Receipt Date: 20140512
  Transmission Date: 20141212
  Serious: No
  Sender: FDA-Public Use
  Company Number: US-BAYER-2014-064496

PATIENT
  Age: 66 Year
  Sex: Male
  Weight: 63 kg

DRUGS (19)
  1. BETASERON [Suspect]
     Indication: MULTIPLE SCLEROSIS
  2. ASPIRIN [Concomitant]
     Dosage: UNK UNK, QD
  3. BACLOFEN [Concomitant]
     Dosage: UNK UNK, TID
  4. CRESTOR [Concomitant]
     Dosage: UNK UNK, HS
  5. ACETAMINOPHEN [Concomitant]
     Dosage: UNK UNK, PRN
  6. TRICOR [Concomitant]
     Dosage: 145 MG, QD
  7. PROMETHAZINE [Concomitant]
     Dosage: UNK UNK, TID
  8. PRILOSEC [Concomitant]
     Dosage: UNK UNK, QD
  9. KLOR-CON [Concomitant]
     Dosage: UNK UNK, QD
  10. VITAMIN B12 [Concomitant]
     Dosage: 1000 ?G, EVERY 31 DAYS
  11. DECADRON [Concomitant]
     Dosage: 1 MG, QOD
     Route: 048
  12. DECADRON [Concomitant]
     Dosage: 15 MG, EVERY 2 WEEKS
  13. VALIUM [Concomitant]
     Dosage: 5 MG, HS
  14. FOLIC ACID [Concomitant]
     Dosage: 800 ?G, QD
  15. NEURONTIN [Concomitant]
     Dosage: 300 MG, TID
  16. VIAGRA [Concomitant]
     Dosage: UNK
  17. ETODOLAC [Concomitant]
     Dosage: 1 DF, BID
  18. VITAMIN D3 [Concomitant]
     Dosage: UNK UNK, QD
  19. HYDROCODONE BITARTRATE [Concomitant]
     Dosage: UNK UNK, PRN

REACTIONS (3)
  - Injection site ulcer [Recovered/Resolved]
  - Injection site mass [Not Recovered/Not Resolved]
  - Mass [None]
